FAERS Safety Report 20981865 (Version 4)
Quarter: 2022Q3

REPORT INFORMATION
  Report Type: Spontaneous
  Country: US (occurrence: US)
  Receive Date: 20220620
  Receipt Date: 20220810
  Transmission Date: 20221027
  Serious: Yes (Other)
  Sender: FDA-Public Use
  Company Number: US-Blueprint Medicines Corporation-SP-US-2022-001795

PATIENT
  Age: 83 Year
  Sex: Female
  Weight: 62.1 kg

DRUGS (14)
  1. AYVAKIT [Suspect]
     Active Substance: AVAPRITINIB
     Indication: Gastrointestinal stromal tumour
     Route: 048
     Dates: start: 20220430
  2. AYVAKIT [Suspect]
     Active Substance: AVAPRITINIB
     Route: 065
     Dates: start: 20220502, end: 20220525
  3. AYVAKIT [Suspect]
     Active Substance: AVAPRITINIB
     Route: 048
     Dates: start: 20220526
  4. AYVAKIT [Suspect]
     Active Substance: AVAPRITINIB
     Route: 065
     Dates: start: 20220602, end: 20220625
  5. AYVAKIT [Suspect]
     Active Substance: AVAPRITINIB
     Route: 048
     Dates: start: 20220720
  6. METFORMIN [Suspect]
     Active Substance: METFORMIN HYDROCHLORIDE
     Indication: Type 2 diabetes mellitus
     Route: 065
  7. ATORVASTATIN [Concomitant]
     Active Substance: ATORVASTATIN
     Indication: Hyperlipidaemia
     Route: 048
  8. Prinivil or Zestril [Concomitant]
     Indication: Essential hypertension
     Route: 048
  9. PEPCID [Concomitant]
     Active Substance: FAMOTIDINE
     Indication: Gastrooesophageal reflux disease
     Dosage: 20MG IN THE MORNING AND 20MG AT NIGHT
     Route: 048
  10. CYANOCOBALAMIN [Concomitant]
     Active Substance: CYANOCOBALAMIN
     Indication: Product used for unknown indication
     Route: 048
  11. FLONASE [Concomitant]
     Active Substance: FLUTICASONE PROPIONATE
     Indication: Product used for unknown indication
     Route: 045
  12. LASIX [Concomitant]
     Active Substance: FUROSEMIDE
     Indication: Product used for unknown indication
     Route: 048
  13. KLOR-CON SPRINKLE [Concomitant]
     Active Substance: POTASSIUM CHLORIDE
     Indication: Product used for unknown indication
     Route: 048
  14. COMPAZINE [Concomitant]
     Active Substance: PROCHLORPERAZINE MALEATE
     Indication: Nausea
     Route: 048

REACTIONS (15)
  - Eye swelling [Not Recovered/Not Resolved]
  - Blood glucose increased [Recovering/Resolving]
  - Diplopia [Recovered/Resolved]
  - Ascites [Recovered/Resolved]
  - Normocytic anaemia [Not Recovered/Not Resolved]
  - Fatigue [Recovering/Resolving]
  - Somnolence [Not Recovered/Not Resolved]
  - Headache [Recovered/Resolved]
  - Leukopenia [Recovered/Resolved]
  - Melaena [Recovered/Resolved]
  - Blood bilirubin increased [Recovered/Resolved]
  - Face oedema [Recovering/Resolving]
  - Lacrimation increased [Unknown]
  - Oedema peripheral [Recovering/Resolving]
  - Hypoaesthesia [Recovered/Resolved]

NARRATIVE: CASE EVENT DATE: 20220602
